FAERS Safety Report 10257861 (Version 1)
Quarter: 2014Q2

REPORT INFORMATION
  Report Type: Spontaneous
  Country: US (occurrence: None)
  Receive Date: 20140623
  Receipt Date: 20140623
  Transmission Date: 20141212
  Serious: No
  Sender: FDA-Public Use
  Company Number: None

PATIENT
  Age: 35 Year
  Sex: Female
  Weight: 75.75 kg

DRUGS (2)
  1. CITALOPRAM [Suspect]
     Indication: ANXIETY
     Dosage: 1 PILL ONCE DAILY
     Dates: start: 20110301
  2. CITALOPRAM [Suspect]
     Indication: DEPRESSION
     Dosage: 1 PILL ONCE DAILY
     Dates: start: 20110301

REACTIONS (6)
  - Drug withdrawal syndrome [None]
  - Sleep terror [None]
  - Dizziness [None]
  - Weight increased [None]
  - Increased appetite [None]
  - Paraesthesia [None]
